FAERS Safety Report 7783133-1 (Version None)
Quarter: 2011Q3

REPORT INFORMATION
  Report Type: 
  Country: None (occurrence: None)
  Receive Date: 20110928
  Receipt Date: 20110923
  Transmission Date: 20111222
  Serious: Yes (Death, Other)
  Sender: FDA-Public Use
  Company Number: PHHY2011US84714

PATIENT
  Age: 56 Year
  Sex: Male

DRUGS (4)
  1. PREDNISONE [Concomitant]
     Dosage: UNK UKN, UNK
  2. TACROLIMUS [Concomitant]
     Dosage: UNK UKN, UNK
  3. MYCOPHENOLIC ACID [Suspect]
     Dosage: UNK UKN, UNK
  4. ANTI-THYMOCYTE GLOBULIN NOS [Concomitant]
     Dosage: UNK UKN, UNK

REACTIONS (10)
  - PYURIA [None]
  - MICROSPORIDIA INFECTION [None]
  - TRANSPLANT REJECTION [None]
  - DIARRHOEA [None]
  - BRONCHOPULMONARY ASPERGILLOSIS [None]
  - PYREXIA [None]
  - PYELONEPHRITIS [None]
  - COUGH [None]
  - RENAL FAILURE ACUTE [None]
  - LUNG TRANSPLANT REJECTION [None]
